FAERS Safety Report 9206237 (Version 1)
Quarter: 2013Q2

REPORT INFORMATION
  Report Type: Spontaneous
  Country: US (occurrence: US)
  Receive Date: 20130403
  Receipt Date: 20130403
  Transmission Date: 20140414
  Serious: No
  Sender: FDA-Public Use
  Company Number: US-PFIZER INC-2013102189

PATIENT
  Sex: Male

DRUGS (4)
  1. VIAGRA [Suspect]
     Dosage: UNK
  2. IBUPROFEN [Interacting]
     Dosage: UNK
  3. ASPIRIN [Interacting]
     Dosage: UNK
  4. ALCOHOL [Interacting]

REACTIONS (2)
  - Drug interaction [Unknown]
  - Drug effect incomplete [Unknown]
